APPROVED DRUG PRODUCT: CHLOROQUINE PHOSPHATE
Active Ingredient: CHLOROQUINE PHOSPHATE
Strength: 250MG
Dosage Form/Route: TABLET;ORAL
Application: A090610 | Product #001
Applicant: IPCA LABORATORIES LTD
Approved: Dec 3, 2009 | RLD: No | RS: No | Type: DISCN